FAERS Safety Report 21793466 (Version 2)
Quarter: 2022Q4

REPORT INFORMATION
  Report Type: Spontaneous
  Country: US (occurrence: US)
  Receive Date: 20221229
  Receipt Date: 20221230
  Transmission Date: 20230112
  Serious: Yes (Hospitalization, Other)
  Sender: FDA-Public Use
  Company Number: US-JNJFOC-20221240962

PATIENT
  Age: 79 Year
  Sex: Female
  Weight: 36.320 kg

DRUGS (3)
  1. INVEGA SUSTENNA [Suspect]
     Active Substance: PALIPERIDONE PALMITATE
     Indication: Schizophrenia
     Route: 030
     Dates: start: 2012
  2. INVEGA SUSTENNA [Suspect]
     Active Substance: PALIPERIDONE PALMITATE
     Route: 030
     Dates: start: 2012
  3. INVEGA SUSTENNA [Suspect]
     Active Substance: PALIPERIDONE PALMITATE

REACTIONS (30)
  - Diabetes mellitus [Unknown]
  - Failure to thrive [Unknown]
  - Coma [Unknown]
  - Schizophrenia [Unknown]
  - Hospitalisation [Unknown]
  - Drooling [Unknown]
  - Sedation [Unknown]
  - Torticollis [Unknown]
  - Tremor [Unknown]
  - Dyspnoea [Unknown]
  - Constipation [Unknown]
  - Asthenia [Unknown]
  - Dizziness [Unknown]
  - Fall [Unknown]
  - Abdominal pain upper [Unknown]
  - Diarrhoea [Unknown]
  - Blood prolactin increased [Unknown]
  - Dysphonia [Unknown]
  - Formication [Unknown]
  - Epistaxis [Unknown]
  - Pain [Unknown]
  - Decreased appetite [Unknown]
  - Hypoaesthesia [Unknown]
  - Weight increased [Unknown]
  - Weight decreased [Unknown]
  - Dehydration [Unknown]
  - Confusional state [Unknown]
  - Dysarthria [Unknown]
  - Living in residential institution [Unknown]
  - Incorrect dose administered [Unknown]

NARRATIVE: CASE EVENT DATE: 20160101
